FAERS Safety Report 16974417 (Version 1)
Quarter: 2019Q4

REPORT INFORMATION
  Report Type: Spontaneous
  Country: FR (occurrence: FR)
  Receive Date: 20191030
  Receipt Date: 20191030
  Transmission Date: 20200122
  Serious: Yes (Hospitalization, Other)
  Sender: FDA-Public Use
  Company Number: FR-SA-2019SA295289

PATIENT
  Age: 85 Year
  Sex: Male
  Weight: 70 kg

DRUGS (9)
  1. XATRAL LP [Suspect]
     Active Substance: ALFUZOSIN
     Indication: URINARY RETENTION
     Dosage: 10 MG, QD (0-0-1)
     Route: 048
     Dates: start: 20190911
  2. HYDROCORTISONE ROUSSEL [HYDROCORTISONE] [Concomitant]
     Active Substance: HYDROCORTISONE
     Indication: ADRENAL INSUFFICIENCY
     Dosage: 60 MG, QD (4-2-0)
     Route: 048
  3. FINASTERIDE. [Suspect]
     Active Substance: FINASTERIDE
     Indication: URINARY RETENTION
     Dosage: 5 MG, QD (1-0-0)
     Route: 048
     Dates: start: 20190912, end: 20190916
  4. PANTOPRAZOLE MYLAN [Suspect]
     Active Substance: PANTOPRAZOLE SODIUM
     Indication: PROPHYLAXIS AGAINST GASTROINTESTINAL ULCER
     Dosage: 20 MG, QD (1-0-0)
     Route: 048
     Dates: start: 20190910, end: 20191003
  5. AMOXICILLIN TRIHYDRATE/POTASSIUM CLAVULANATE [Suspect]
     Active Substance: AMOXICILLIN\CLAVULANATE POTASSIUM
     Indication: PNEUMONIA ASPIRATION
     Dosage: 3 DF, QD (1-1-1)
     Route: 048
     Dates: start: 20190912, end: 20190916
  6. ASPEGIC [ACETYLSALICYLATE LYSINE] [Concomitant]
     Active Substance: ASPIRIN DL-LYSINE
     Indication: CARDIAC FAILURE
     Dosage: 100 MG, QD (0-1-0)
     Route: 048
  7. LOVENOX [Suspect]
     Active Substance: ENOXAPARIN SODIUM
     Indication: THROMBOSIS PROPHYLAXIS
     Dosage: 4000 IU, QD (0-0-1)
     Route: 058
     Dates: start: 20190911, end: 20191004
  8. LEVOTHYROX [Concomitant]
     Active Substance: LEVOTHYROXINE
     Indication: HYPOTHYROIDISM
     Dosage: 100 UG, QD (1-0-0)
     Route: 048
  9. SERESTA [Concomitant]
     Active Substance: OXAZEPAM
     Indication: ANXIETY
     Dosage: 10 MG, QD (0-0-1)
     Route: 048

REACTIONS (3)
  - Cholestasis [Recovered/Resolved]
  - Hepatitis [Recovered/Resolved]
  - Hepatitis acute [Recovered/Resolved]

NARRATIVE: CASE EVENT DATE: 20190916
